FAERS Safety Report 8775271 (Version 1)
Quarter: 2012Q4

REPORT INFORMATION
  Report Type: 
  Country: US (occurrence: US)
  Receive Date: 20120910
  Receipt Date: 20120910
  Transmission Date: 20130627
  Serious: Yes (Other)
  Sender: FDA-Public Use
  Company Number: US-ROCHE-1004975

PATIENT
  Age: 15 Year
  Sex: Male

DRUGS (6)
  1. XOLAIR [Suspect]
     Indication: ASTHMA
     Route: 065
  2. FLUTICASONE PROPIONATE/SALMETEROL [Concomitant]
     Route: 065
  3. MONTELUKAST [Concomitant]
     Route: 065
  4. LORATADINE [Concomitant]
     Route: 065
  5. FLUTICASONE [Concomitant]
     Route: 045
  6. RANITIDINE [Concomitant]
     Route: 065

REACTIONS (1)
  - Asthma [Recovering/Resolving]
